FAERS Safety Report 12538819 (Version 1)
Quarter: 2016Q3

REPORT INFORMATION
  Report Type: Spontaneous
  Country: GB (occurrence: GB)
  Receive Date: 20160708
  Receipt Date: 20160708
  Transmission Date: 20161109
  Serious: Yes (Other)
  Sender: FDA-Public Use
  Company Number: GB-ASTRAZENECA-2016SE71953

PATIENT
  Age: 63 Year
  Sex: Male
  Weight: 132.9 kg

DRUGS (11)
  1. DAPAGLIFLOZIN [Suspect]
     Active Substance: DAPAGLIFLOZIN
     Indication: DIABETES MELLITUS
     Route: 048
     Dates: start: 201505, end: 201511
  2. DAPAGLIFLOZIN [Suspect]
     Active Substance: DAPAGLIFLOZIN
     Indication: DIABETES MELLITUS
     Dosage: 10 UNIT3
     Route: 048
     Dates: start: 201602, end: 201602
  3. INDAPAMIDE. [Concomitant]
     Active Substance: INDAPAMIDE
  4. HUMULIN NOS [Concomitant]
     Active Substance: INSULIN HUMAN
  5. METFORMIN [Concomitant]
     Active Substance: METFORMIN HYDROCHLORIDE
  6. KETOCONAZOLE. [Concomitant]
     Active Substance: KETOCONAZOLE
  7. SIMVASTATIN. [Concomitant]
     Active Substance: SIMVASTATIN
  8. FELODIPINE. [Concomitant]
     Active Substance: FELODIPINE
  9. GLICLAZIDE [Concomitant]
     Active Substance: GLICLAZIDE
  10. PERINDOPRIL [Concomitant]
     Active Substance: PERINDOPRIL
  11. FENBID [Concomitant]
     Active Substance: IBUPROFEN

REACTIONS (2)
  - Bladder cancer [Unknown]
  - Haematuria [Recovered/Resolved]

NARRATIVE: CASE EVENT DATE: 20160512
